FAERS Safety Report 17789409 (Version 1)
Quarter: 2020Q2

REPORT INFORMATION
  Report Type: Report from Study
  Country: GB (occurrence: GB)
  Receive Date: 20200514
  Receipt Date: 20200514
  Transmission Date: 20200714
  Serious: Yes (Hospitalization, Other)
  Sender: FDA-Public Use
  Company Number: NVSC2020GB048873

PATIENT
  Sex: Female

DRUGS (2)
  1. OMNITROPE [Suspect]
     Active Substance: SOMATROPIN
     Dosage: 0.3 MG, QD AS DIRECTED
     Route: 065
     Dates: start: 20190308
  2. OMNITROPE [Suspect]
     Active Substance: SOMATROPIN
     Indication: PRODUCT USED FOR UNKNOWN INDICATION
     Dosage: 0.3 MG, QD AS DIRECTED
     Route: 065
     Dates: start: 20190208

REACTIONS (8)
  - Wrong technique in device usage process [Unknown]
  - Hypopituitarism [Unknown]
  - Arthritis [Unknown]
  - Product dose omission [Unknown]
  - Malaise [Unknown]
  - Sepsis [Unknown]
  - Diabetes mellitus [Unknown]
  - Device issue [Unknown]
